FAERS Safety Report 10238518 (Version 1)
Quarter: 2014Q2

REPORT INFORMATION
  Report Type: Spontaneous
  Country: CN (occurrence: None)
  Receive Date: 20140612
  Receipt Date: 20140612
  Transmission Date: 20141212
  Serious: Yes (Other)
  Sender: FDA-Public Use
  Company Number: FK201402272

PATIENT
  Age: 82 Year
  Sex: Male

DRUGS (2)
  1. INTRALIPID (LIPID EMULSION) (LIPID EMULSION) [Suspect]
     Indication: NUTRITIONAL SUPPLEMENTATION
     Route: 041
     Dates: start: 20131023, end: 20131023
  2. COMPOUND AMINO ACID (AMINO ACID) (AMINO ACID) [Concomitant]

REACTIONS (3)
  - Chest discomfort [None]
  - Nausea [None]
  - Vomiting [None]
